FAERS Safety Report 4502204-6 (Version None)
Quarter: 2004Q4

REPORT INFORMATION
  Report Type: 
  Country: None (occurrence: None)
  Receive Date: 20041109
  Receipt Date: 20041022
  Transmission Date: 20050328
  Serious: Yes (Hospitalization)
  Sender: FDA-Public Use
  Company Number: EWC041041132

PATIENT
  Age: 49 Year
  Sex: Male
  Weight: 83 kg

DRUGS (6)
  1. HUMATROPE [Suspect]
     Indication: HYPOPITUITARISM
     Dosage: 0.3 MG DAY
     Dates: start: 20001020
  2. CORTISONE [Concomitant]
  3. EUTIROX (LEVOTHYROXINE) [Concomitant]
  4. TESTOVIRON [Concomitant]
  5. MINIRIN (DESMOPRESSIN ACETATE) [Concomitant]
  6. PERINDOPRIL [Concomitant]

REACTIONS (1)
  - ENCEPHALITIS VIRAL [None]
